FAERS Safety Report 12875433 (Version 1)
Quarter: 2016Q4

REPORT INFORMATION
  Report Type: Spontaneous
  Country: EE (occurrence: EE)
  Receive Date: 20161024
  Receipt Date: 20161024
  Transmission Date: 20170207
  Serious: Yes (Death, Hospitalization)
  Sender: FDA-Public Use
  Company Number: EE-ORION CORPORATION ORION PHARMA-16_00001968

PATIENT
  Age: 46 Year
  Sex: Female

DRUGS (9)
  1. MEDROL [Suspect]
     Active Substance: METHYLPREDNISOLONE
     Indication: GRANULOMATOSIS WITH POLYANGIITIS
     Route: 048
  2. ALLOPURINOL. [Concomitant]
     Active Substance: ALLOPURINOL
     Indication: HYPERURICAEMIA
     Route: 048
  3. BETALOC ZOK [Concomitant]
     Active Substance: METOPROLOL SUCCINATE
     Indication: HYPERTENSION
     Dosage: STRENGTH: 50 MG
     Route: 048
  4. TREXAN [Suspect]
     Active Substance: METHOTREXATE SODIUM
     Indication: GRANULOMATOSIS WITH POLYANGIITIS
     Route: 048
     Dates: start: 20131010, end: 20160522
  5. MABTHERA [Suspect]
     Active Substance: RITUXIMAB
     Indication: GRANULOMATOSIS WITH POLYANGIITIS
     Route: 042
     Dates: start: 20150317, end: 20150421
  6. CORINFAR RETARD [Concomitant]
     Indication: HYPERTENSION
     Route: 048
  7. MONOZIDE [Concomitant]
     Indication: HYPERTENSION
     Dosage: STRENGTH: 20/12.5 MG
     Route: 048
  8. MONOPRIL [Concomitant]
     Active Substance: FOSINOPRIL SODIUM
     Indication: HYPERTENSION
     Route: 048
  9. ROSUVASTATIN. [Concomitant]
     Active Substance: ROSUVASTATIN
     Indication: HYPERCHOLESTEROLAEMIA
     Route: 048

REACTIONS (9)
  - Enterococcal infection [Unknown]
  - Peritonitis [Fatal]
  - Staphylococcal infection [Unknown]
  - Sepsis [Fatal]
  - Diverticulum [Unknown]
  - Multiple organ dysfunction syndrome [Fatal]
  - Diverticular perforation [Fatal]
  - Diverticulitis [Fatal]
  - Candida infection [Unknown]

NARRATIVE: CASE EVENT DATE: 201509
